FAERS Safety Report 9297526 (Version 1)
Quarter: 2013Q2

REPORT INFORMATION
  Report Type: Spontaneous
  Country: US (occurrence: US)
  Receive Date: 20130520
  Receipt Date: 20130520
  Transmission Date: 20140414
  Serious: Yes (Hospitalization)
  Sender: FDA-Public Use
  Company Number: US-BAYER-2013-060317

PATIENT
  Age: 30 Year
  Sex: Female
  Weight: 47.17 kg

DRUGS (6)
  1. YAZ [Suspect]
  2. GIANVI [Suspect]
  3. YASMIN [Suspect]
  4. MECLIZINE [Concomitant]
  5. COZAAR [Concomitant]
  6. ATENOLOL [Concomitant]

REACTIONS (1)
  - Cerebral infarction [None]
